FAERS Safety Report 9340807 (Version 2)
Quarter: 2013Q2

REPORT INFORMATION
  Report Type: Spontaneous
  Country: US (occurrence: US)
  Receive Date: 20130610
  Receipt Date: 20130627
  Transmission Date: 20140414
  Serious: Yes (Hospitalization, Other)
  Sender: FDA-Public Use
  Company Number: US-B.I. PHARMACEUTICALS,INC./RIDGEFIELD-2013-BI-15949BP

PATIENT
  Age: 85 Year
  Sex: Male
  Weight: 97 kg

DRUGS (7)
  1. PRADAXA [Suspect]
     Indication: ATRIAL FIBRILLATION
     Dosage: 300 MG
     Dates: start: 2011
  2. HUMIRA [Concomitant]
  3. IMURAN [Concomitant]
  4. DIGOXIN [Concomitant]
     Dosage: 0.25 MG
  5. LASIX [Concomitant]
     Dosage: 80 MG
  6. COREG [Concomitant]
     Dosage: 25 MG
  7. CARVEDILOL [Concomitant]

REACTIONS (5)
  - Rectal haemorrhage [Recovered/Resolved]
  - Arteriovenous malformation [Recovered/Resolved]
  - Intestinal polyp haemorrhage [Recovered/Resolved]
  - Haematoma [Recovered/Resolved]
  - Erythema [Recovered/Resolved]
